FAERS Safety Report 18071412 (Version 2)
Quarter: 2025Q2

REPORT INFORMATION
  Report Type: Spontaneous
  Country: PT (occurrence: PT)
  Receive Date: 20200727
  Receipt Date: 20250628
  Transmission Date: 20250717
  Serious: Yes (Hospitalization)
  Sender: AUROBINDO
  Company Number: PT-ARISTO PHARMA IBERIA S.L.-2020005569

PATIENT
  Age: 78 Year
  Sex: Female

DRUGS (6)
  1. MEMANTINE [Suspect]
     Active Substance: MEMANTINE
     Indication: Dementia
     Dosage: 20 MILLIGRAM, ONCE A DAY
     Route: 065
     Dates: start: 201706, end: 201711
  2. RISPERIDONE [Suspect]
     Active Substance: RISPERIDONE
     Indication: Dementia
     Dosage: 2 MILLIGRAM, ONCE A DAY
     Route: 065
  3. RISPERIDONE [Suspect]
     Active Substance: RISPERIDONE
     Dosage: 5 MILLIGRAM, ONCE A DAY
     Route: 065
  4. OXAZEPAM [Suspect]
     Active Substance: OXAZEPAM
     Indication: Dementia
     Dosage: 15 MILLIGRAM, 3 TIMES A DAY
     Route: 065
  5. LORAZEPAM [Concomitant]
     Active Substance: LORAZEPAM
     Indication: Depression
     Dosage: 1 MILLIGRAM, ONCE A DAY (AT BEDTIME)
     Route: 065
  6. ESCITALOPRAM [Concomitant]
     Active Substance: ESCITALOPRAM OXALATE
     Indication: Major depression
     Dosage: 10 MILLIGRAM, ONCE A DAY
     Route: 065

REACTIONS (1)
  - Mania [Recovered/Resolved]
